FAERS Safety Report 19935932 (Version 2)
Quarter: 2021Q4

REPORT INFORMATION
  Report Type: Spontaneous
  Country: GB (occurrence: GB)
  Receive Date: 20211008
  Receipt Date: 20211231
  Transmission Date: 20220303
  Serious: Yes (Life-Threatening, Hospitalization, Other)
  Sender: FDA-Public Use
  Company Number: None

PATIENT
  Age: 29 Year
  Sex: Female

DRUGS (15)
  1. COCODAMOL [Suspect]
     Active Substance: ACETAMINOPHEN\CODEINE PHOSPHATE
     Indication: Pelvic pain
     Dosage: 4 MILLIGRAM DAILY; GESTATION PERIOD AT TIME OF EXPOSURE: 2 TRIMESTER
     Route: 048
  2. COCODAMOL [Suspect]
     Active Substance: ACETAMINOPHEN\CODEINE PHOSPHATE
     Indication: Pelvic girdle pain
     Dosage: 4, QID, GESTATION PERIOD: 2 (TRIMESTER), 16 MG
     Route: 048
  3. ACETAMINOPHEN [Suspect]
     Active Substance: ACETAMINOPHEN
     Indication: Pelvic pain
     Dosage: UP TO FOUR DOSES PER DAY, 16 MG
     Route: 048
  4. ACETAMINOPHEN [Suspect]
     Active Substance: ACETAMINOPHEN
     Dosage: 4 MILLIGRAM DAILY; 4 MG, QD
     Route: 048
  5. CODEINE PHOSPHATE [Suspect]
     Active Substance: CODEINE PHOSPHATE
     Indication: Pelvic pain
     Dosage: 4 MILLIGRAM DAILY; THERAPY START AND END DATE: ASKU, 4 MG, QD
     Route: 048
  6. CODEINE PHOSPHATE [Suspect]
     Active Substance: CODEINE PHOSPHATE
     Dosage: 16 MILLIGRAM DAILY; THERAPY START AND END DATE: ASKU, 16 MG, QD
     Route: 048
  7. CODEINE PHOSPHATE [Suspect]
     Active Substance: CODEINE PHOSPHATE
     Dosage: UNK, QID
     Route: 048
  8. CEPHRADINE [Concomitant]
     Active Substance: CEPHRADINE
     Indication: Product used for unknown indication
     Dosage: UNK
     Route: 065
  9. CEPHRADINE [Concomitant]
     Active Substance: CEPHRADINE
     Route: 064
  10. ENOXAPARIN [Concomitant]
     Active Substance: ENOXAPARIN
     Indication: Product used for unknown indication
     Dosage: UNK
     Route: 065
  11. ENOXAPARIN [Concomitant]
     Active Substance: ENOXAPARIN
     Route: 064
  12. FLUOXETINE [Concomitant]
     Active Substance: FLUOXETINE HYDROCHLORIDE
     Indication: Product used for unknown indication
     Route: 065
  13. FLUOXETINE [Concomitant]
     Active Substance: FLUOXETINE HYDROCHLORIDE
     Dosage: UNK
     Route: 065
  14. METRONIDAZOLE [Concomitant]
     Active Substance: METRONIDAZOLE
     Indication: Pyelonephritis
     Route: 065
  15. METRONIDAZOLE [Concomitant]
     Active Substance: METRONIDAZOLE
     Indication: Pyelonephritis
     Route: 065

REACTIONS (23)
  - Maternal exposure during pregnancy [Recovered/Resolved]
  - Feeling guilty [Unknown]
  - Hepatic failure [Recovered/Resolved]
  - Accidental overdose [Unknown]
  - Consciousness fluctuating [Unknown]
  - Developmental delay [Unknown]
  - Exposure during pregnancy [Recovered/Resolved]
  - Asthenia [Unknown]
  - Fear [Unknown]
  - Live birth [Unknown]
  - Caesarean section [Unknown]
  - Liver disorder [Unknown]
  - Uterine hypertonus [Unknown]
  - Depressed level of consciousness [Unknown]
  - Hepatotoxicity [Recovered/Resolved with Sequelae]
  - Fear of death [Unknown]
  - Asthenopia [Unknown]
  - Premature labour [Unknown]
  - Crying [Unknown]
  - Foetal monitoring abnormal [Unknown]
  - Gait inability [Unknown]
  - Malaise [Recovered/Resolved]
  - Incorrect product administration duration [Unknown]
